FAERS Safety Report 4439968-6 (Version None)
Quarter: 2004Q3

REPORT INFORMATION
  Report Type: 
  Country: None (occurrence: None)
  Receive Date: 20040831
  Receipt Date: 20040818
  Transmission Date: 20050211
  Serious: Yes (Hospitalization)
  Sender: FDA-Public Use
  Company Number: 2004229282IN

PATIENT
  Age: 69 Year
  Sex: Female

DRUGS (3)
  1. EPIRUBICIN [Suspect]
     Dosage: 50 MG/M2
  2. FLUOROURACIL [Concomitant]
  3. CYCLOPHOSPHAMIDE [Concomitant]

REACTIONS (1)
  - CARDIAC ARREST [None]
